FAERS Safety Report 5752286-9 (Version None)
Quarter: 2008Q2

REPORT INFORMATION
  Report Type: 
  Country: None (occurrence: None)
  Receive Date: 20080529
  Receipt Date: 20080522
  Transmission Date: 20081010
  Serious: Yes (Disabling)
  Sender: FDA-Public Use
  Company Number: HU-MERCK-98059524

PATIENT
  Age: 63 Year
  Sex: Female
  Weight: 59 kg

DRUGS (4)
  1. FOSAMAX [Suspect]
     Indication: OSTEOPOROSIS
     Route: 048
     Dates: start: 19970801, end: 19980331
  2. NITROGLYCERIN [Concomitant]
     Route: 065
  3. VINPOCETINE [Concomitant]
     Route: 065
  4. PRAZOSIN [Concomitant]
     Route: 065

REACTIONS (1)
  - BLINDNESS [None]
